FAERS Safety Report 7580716-9 (Version None)
Quarter: 2011Q2

REPORT INFORMATION
  Report Type: 
  Country: None (occurrence: None)
  Receive Date: 20110629
  Receipt Date: 20110624
  Transmission Date: 20111010
  Serious: Yes (Hospitalization, Other)
  Sender: FDA-Public Use
  Company Number: GB-B.I. PHARMACEUTICALS,INC./RIDGEFIELD-2011-UK-00671UK

PATIENT
  Age: 83 Year
  Sex: Female

DRUGS (12)
  1. OMEPRAZOLE [Concomitant]
  2. PRADAXA [Suspect]
     Route: 048
     Dates: start: 20110528, end: 20110610
  3. ATENOLOL [Concomitant]
  4. RAMIPRIL [Concomitant]
  5. SIMVASTATIN [Concomitant]
  6. TOLTERODINE TARTRATE [Concomitant]
  7. ACETAMINOPHEN [Concomitant]
  8. CODEINE SULFATE [Concomitant]
  9. TIMOPTOL-LA [Concomitant]
  10. ASPIRIN [Concomitant]
  11. BENDROFLUMETHIAZIDE [Concomitant]
  12. METFORMIN HCL [Concomitant]

REACTIONS (4)
  - INAPPROPRIATE ANTIDIURETIC HORMONE SECRETION [None]
  - VOMITING [None]
  - CONFUSIONAL STATE [None]
  - DIARRHOEA [None]
